FAERS Safety Report 9530766 (Version 4)
Quarter: 2014Q2

REPORT INFORMATION
  Report Type: Spontaneous
  Country: US (occurrence: US)
  Receive Date: 20130918
  Receipt Date: 20140507
  Transmission Date: 20141212
  Serious: Yes (Hospitalization, Other)
  Sender: FDA-Public Use
  Company Number: US-AMGEN-USASP2013065060

PATIENT
  Age: 48 Year
  Sex: Female
  Weight: 83.45 kg

DRUGS (17)
  1. ENBREL [Suspect]
     Indication: RHEUMATOID ARTHRITIS
     Dosage: 50 MG, QWK
     Route: 058
     Dates: start: 20071001, end: 20131203
  2. PREDNISONE [Suspect]
     Indication: PRODUCT USED FOR UNKNOWN INDICATION
     Dosage: UNK
     Route: 065
  3. METHOTREXATE [Suspect]
     Indication: PRODUCT USED FOR UNKNOWN INDICATION
     Dosage: 20 MG, QWK
     Route: 065
     Dates: start: 200710, end: 201401
  4. ARAVA [Concomitant]
     Dosage: 10 MG, QD
     Dates: start: 201402
  5. ARAVA [Concomitant]
     Dosage: 20 MG, QD
     Route: 048
     Dates: start: 201404
  6. ETODOLAC [Concomitant]
     Indication: PAIN
     Dosage: 400 MG, BID
     Route: 048
  7. FERROUS SULFATE [Concomitant]
     Indication: BLOOD COUNT ABNORMAL
     Dosage: 325 MG, QD
     Route: 048
  8. FOLIC ACID [Concomitant]
     Dosage: 1 MG, QD
     Route: 048
  9. NEURONTIN [Concomitant]
     Dosage: 100 MG, TID
     Route: 048
  10. ACETAMINOPHEN W/HYDROCODONE [Concomitant]
     Indication: PAIN
     Dosage: (5-325) MG, BID
     Route: 048
  11. ACETAMINOPHEN W/HYDROCODONE [Concomitant]
     Dosage: (5-325) MG, EVERY SIX HOURS AS NECESSARY
     Route: 048
  12. INSULIN GLARGINE [Concomitant]
     Indication: DIABETES MELLITUS
     Dosage: 100 UNIT/ML, UNK (INJECT 20 UNIT EVERY EVENING)
     Route: 058
  13. INSULIN LISPRO [Concomitant]
     Dosage: 100 UNIT/ML, TID WITH MEALS
     Route: 058
  14. LEFLUNOMIDE [Concomitant]
     Dosage: 10 MG, QD
     Route: 048
  15. LISINOPRIL AND HYDROCHLOROTHIAZIDE [Concomitant]
     Indication: HYPERTENSION
     Dosage: 20-25 MG, QD
     Route: 048
  16. METHOCARBAMOL [Concomitant]
     Indication: MUSCLE SPASMS
     Dosage: 500 MG, (FOUR TIMES DAILY)
     Route: 048
  17. INSULIN [Concomitant]
     Dosage: 1 ML, UNK (30X 5/16)

REACTIONS (21)
  - Swelling [Recovered/Resolved]
  - Pain [Not Recovered/Not Resolved]
  - Rheumatoid arthritis [Recovered/Resolved]
  - Nervousness [Recovered/Resolved]
  - Musculoskeletal pain [Not Recovered/Not Resolved]
  - Mobility decreased [Not Recovered/Not Resolved]
  - Arthralgia [Not Recovered/Not Resolved]
  - Blood glucose increased [Recovered/Resolved]
  - Pain in extremity [Not Recovered/Not Resolved]
  - Red blood cell sedimentation rate increased [Unknown]
  - Neck pain [Not Recovered/Not Resolved]
  - Local swelling [Not Recovered/Not Resolved]
  - Joint swelling [Not Recovered/Not Resolved]
  - Musculoskeletal stiffness [Not Recovered/Not Resolved]
  - Joint stiffness [Not Recovered/Not Resolved]
  - Feeling abnormal [Recovered/Resolved]
  - Liver disorder [Recovered/Resolved]
  - Dizziness [Recovered/Resolved]
  - Hyperhidrosis [Recovered/Resolved]
  - Vomiting [Recovered/Resolved]
  - Injection site pain [Recovered/Resolved]
